FAERS Safety Report 9959618 (Version 1)
Quarter: 2014Q1

REPORT INFORMATION
  Report Type: Spontaneous
  Country: US (occurrence: None)
  Receive Date: 20140228
  Receipt Date: 20140228
  Transmission Date: 20141002
  Serious: Yes (Hospitalization, Disabling)
  Sender: FDA-Public Use
  Company Number: None

PATIENT
  Sex: 0

DRUGS (2)
  1. KENALOG [Suspect]
     Indication: SPINAL COLUMN STENOSIS
     Dates: start: 20130416
  2. KENALOG [Suspect]
     Indication: BACK PAIN
     Dates: start: 20130416

REACTIONS (3)
  - Abscess [None]
  - Meningitis [None]
  - Infection [None]
